FAERS Safety Report 13762613 (Version 1)
Quarter: 2017Q3

REPORT INFORMATION
  Report Type: Spontaneous
  Country: US (occurrence: US)
  Receive Date: 20170718
  Receipt Date: 20170718
  Transmission Date: 20171127
  Serious: Yes (Hospitalization)
  Sender: FDA-Public Use
  Company Number: US-TORRENT-00003184

PATIENT
  Age: 78 Year
  Sex: Male

DRUGS (5)
  1. PAROXETINE. [Interacting]
     Active Substance: PAROXETINE
  2. ACICLOVIR [Concomitant]
     Active Substance: ACYCLOVIR
  3. ESOMEPRAZOLE [Interacting]
     Active Substance: ESOMEPRAZOLE
  4. CAPECITABINE. [Suspect]
     Active Substance: CAPECITABINE
  5. SIMVASTATIN. [Interacting]
     Active Substance: SIMVASTATIN

REACTIONS (3)
  - Drug interaction [Unknown]
  - Off label use [Unknown]
  - Meningitis cryptococcal [Not Recovered/Not Resolved]
